FAERS Safety Report 7765071-3 (Version None)
Quarter: 2011Q3

REPORT INFORMATION
  Report Type: 
  Country: None (occurrence: None)
  Receive Date: 20110921
  Receipt Date: 20110916
  Transmission Date: 20111222
  Serious: Yes (Hospitalization)
  Sender: FDA-Public Use
  Company Number: SE-ROCHE-802889

PATIENT
  Age: 2 Year
  Sex: Female

DRUGS (1)
  1. ACTEMRA [Suspect]
     Route: 065
     Dates: start: 20110101, end: 20110101

REACTIONS (2)
  - PAIN [None]
  - BLOOD PRESSURE DECREASED [None]
